FAERS Safety Report 21251397 (Version 5)
Quarter: 2024Q2

REPORT INFORMATION
  Report Type: Report from Study
  Country: US (occurrence: US)
  Receive Date: 20220825
  Receipt Date: 20240612
  Transmission Date: 20240716
  Serious: No
  Sender: FDA-Public Use
  Company Number: US-NOVARTISTESTPH-NVSC2022US189690

PATIENT
  Age: 3 Year
  Sex: Male

DRUGS (3)
  1. ILARIS [Suspect]
     Active Substance: CANAKINUMAB
     Indication: Pyrexia
     Dosage: 44 MG, EVERY 8 WEEKS
     Route: 058
  2. ILARIS [Suspect]
     Active Substance: CANAKINUMAB
     Dosage: 100 MG, EVERY 28 DAYS
     Route: 058
     Dates: start: 20220817
  3. ILARIS [Suspect]
     Active Substance: CANAKINUMAB
     Dosage: 150 MG, OTHER (Q 28 DAYS)
     Route: 058
     Dates: start: 20240605

REACTIONS (2)
  - Incorrect dose administered [Not Recovered/Not Resolved]
  - Impetigo [Unknown]

NARRATIVE: CASE EVENT DATE: 20230912
